FAERS Safety Report 9221151 (Version 2)
Quarter: 2013Q3

REPORT INFORMATION
  Report Type: Report from Study
  Country: JP (occurrence: JP)
  Receive Date: 20130409
  Receipt Date: 20130927
  Transmission Date: 20140515
  Serious: Yes (Other)
  Sender: FDA-Public Use
  Company Number: JP-009507513-1304JPN003271

PATIENT
  Age: 72 Year
  Sex: Male

DRUGS (10)
  1. ZOLINZA CAPSULES 100MG [Suspect]
     Indication: ADULT T-CELL LYMPHOMA/LEUKAEMIA
     Dosage: 400 MG, QD
     Route: 048
     Dates: start: 20120726, end: 20120801
  2. DENOSINE [Suspect]
     Indication: CYTOMEGALOVIRUS TEST POSITIVE
     Dosage: 250 MG, QD
     Route: 051
     Dates: end: 20120730
  3. OXYCONTIN [Concomitant]
     Indication: ADULT T-CELL LYMPHOMA/LEUKAEMIA
     Dosage: 5 MG, BID
     Route: 048
  4. NOVAMIN (PROCHLORPERAZINE MALEATE) [Concomitant]
     Indication: ADULT T-CELL LYMPHOMA/LEUKAEMIA
     Dosage: 5 MG, TID
     Route: 048
     Dates: end: 20120801
  5. ATARAX P [Concomitant]
     Indication: ADULT T-CELL LYMPHOMA/LEUKAEMIA
     Dosage: 25 MG, QD
     Route: 048
  6. FLUCONAZOLE [Concomitant]
     Indication: PROPHYLAXIS
     Dosage: 100 MG, QD
     Route: 048
  7. BLOPRESS [Concomitant]
     Indication: HYPERTENSION
     Dosage: 8 MG, QD
     Route: 048
  8. ALLELOCK [Concomitant]
     Indication: ADULT T-CELL LYMPHOMA/LEUKAEMIA
     Dosage: 5 MG, BID
     Route: 048
  9. ZYLORIC [Concomitant]
     Indication: PROPHYLAXIS
     Dosage: 100 MG, BID
     Route: 048
  10. BACTRAMIN [Concomitant]
     Indication: PROPHYLAXIS
     Dosage: 1 DF, QD
     Route: 048

REACTIONS (4)
  - Renal failure acute [Recovered/Resolved]
  - Diarrhoea [Recovering/Resolving]
  - Platelet count decreased [Not Recovered/Not Resolved]
  - Blood creatinine increased [Recovered/Resolved]
